FAERS Safety Report 4307778-6 (Version None)
Quarter: 2004Q1

REPORT INFORMATION
  Report Type: 
  Country: None (occurrence: None)
  Receive Date: 20040225
  Receipt Date: 20030507
  Transmission Date: 20041129
  Serious: Yes (Hospitalization)
  Sender: FDA-Public Use
  Company Number: WAES 0305USA01303

PATIENT
  Age: 63 Year
  Sex: Female
  Weight: 120.2032 kg

DRUGS (12)
  1. ZOCOR [Suspect]
     Dosage: 80 MG/DAILY/PO
     Route: 048
     Dates: start: 19990101, end: 20011231
  2. ADVAIR DISKUS 100/50 [Concomitant]
  3. CARDURA [Concomitant]
  4. COVERA-HS [Concomitant]
  5. GLUCOPHAGE [Concomitant]
  6. LEVAQUIN [Concomitant]
  7. OXYCONTIN [Concomitant]
  8. PRINIVIL [Concomitant]
  9. PROVENTIL [Concomitant]
  10. REMERON [Concomitant]
  11. SYNTHROID [Concomitant]
  12. VIOXX [Concomitant]

REACTIONS (8)
  - BLOOD THYROID STIMULATING HORMONE INCREASED [None]
  - CHEST WALL PAIN [None]
  - INSOMNIA [None]
  - PRURITUS [None]
  - RENAL FAILURE ACUTE [None]
  - RENAL FAILURE CHRONIC [None]
  - RHABDOMYOLYSIS [None]
  - TEMPERATURE INTOLERANCE [None]
